FAERS Safety Report 9363583 (Version 3)
Quarter: 2013Q3

REPORT INFORMATION
  Report Type: Report from Study
  Country: DE (occurrence: DE)
  Receive Date: 20130624
  Receipt Date: 20130725
  Transmission Date: 20140515
  Serious: Yes (Life-Threatening, Hospitalization)
  Sender: FDA-Public Use
  Company Number: PHHO2013DE008175

PATIENT
  Age: 5 Year
  Sex: Male
  Weight: 16 kg

DRUGS (6)
  1. ACZ885 [Suspect]
     Indication: JUVENILE IDIOPATHIC ARTHRITIS
     Dosage: 57 MG, UNK
     Route: 058
     Dates: start: 20101013, end: 20130618
  2. INDOMETHACIN [Concomitant]
     Indication: PAIN
     Dosage: 15 MG, TID
     Route: 048
  3. INDOMETHACIN [Concomitant]
     Indication: ARTHRITIS
     Dosage: 3 MG, TID
  4. OMEPRAZOLE [Concomitant]
     Indication: PROPHYLAXIS AGAINST GASTROINTESTINAL ULCER
     Dosage: 20 MG, BID
     Route: 048
  5. METHOTREXATE [Concomitant]
     Indication: ARTHRITIS
     Dosage: 7.5 MG, QW
     Route: 048
     Dates: end: 20130618
  6. FOLATE [Concomitant]
     Indication: PROPHYLAXIS
     Dosage: 5 MG, QW
     Route: 048
     Dates: end: 20130618

REACTIONS (1)
  - Histiocytosis haematophagic [Recovered/Resolved]
